FAERS Safety Report 16290409 (Version 1)
Quarter: 2019Q2

REPORT INFORMATION
  Report Type: Spontaneous
  Country: US (occurrence: US)
  Receive Date: 20190508
  Receipt Date: 20190508
  Transmission Date: 20190711
  Serious: Yes (Other)
  Sender: FDA-Public Use
  Company Number: None

PATIENT
  Age: 71 Year
  Sex: Female
  Weight: 65.25 kg

DRUGS (5)
  1. YUVAFEM [Suspect]
     Active Substance: ESTRADIOL HEMIHYDRATE
     Indication: ATROPHIC VULVOVAGINITIS
     Dosage: ?          OTHER STRENGTH:MCG;QUANTITY:1 TABLET(S);OTHER FREQUENCY:TWICE A WEEK;?
     Route: 067
  2. FISH OIL [Concomitant]
     Active Substance: FISH OIL
  3. ENALIPRIL [Concomitant]
  4. CALCIUM WITH D3 [Concomitant]
  5. YUVAFEM [Concomitant]
     Active Substance: ESTRADIOL HEMIHYDRATE

REACTIONS (5)
  - Device defective [None]
  - Vulvovaginal pain [None]
  - Injury associated with device [None]
  - Complication of device insertion [None]
  - Vaginal haemorrhage [None]

NARRATIVE: CASE EVENT DATE: 20190507
